FAERS Safety Report 9164052 (Version 5)
Quarter: 2014Q2

REPORT INFORMATION
  Report Type: Spontaneous
  Country: US (occurrence: US)
  Receive Date: 20130314
  Receipt Date: 20140624
  Transmission Date: 20141212
  Serious: No
  Sender: FDA-Public Use
  Company Number: US-009507513-1303USA006754

PATIENT
  Sex: Male
  Weight: 93.7 kg

DRUGS (5)
  1. PROPECIA [Suspect]
     Indication: ANDROGENETIC ALOPECIA
     Dosage: 1 MG, QD
     Route: 048
     Dates: start: 20050314, end: 20070830
  2. WELLBUTRIN [Concomitant]
     Indication: BIPOLAR DISORDER
     Dosage: UNK
     Route: 048
     Dates: start: 2003, end: 20070830
  3. LAMICTAL [Concomitant]
     Indication: BIPOLAR DISORDER
     Dosage: 200 MG, QD
     Route: 048
     Dates: start: 2004
  4. LAMICTAL [Concomitant]
     Dosage: UNK
     Route: 048
     Dates: start: 2002
  5. CELEXA [Concomitant]
     Indication: BIPOLAR DISORDER
     Dosage: UNK
     Route: 048
     Dates: start: 2002

REACTIONS (19)
  - Breast mass [Unknown]
  - Cognitive disorder [Unknown]
  - Chronic spontaneous urticaria [Not Recovered/Not Resolved]
  - Peripheral swelling [Unknown]
  - Urine flow decreased [Unknown]
  - Terminal dribbling [Unknown]
  - Erectile dysfunction [Unknown]
  - Loss of libido [Unknown]
  - Gynaecomastia [Unknown]
  - Sexual dysfunction [Unknown]
  - Sexual dysfunction [Unknown]
  - Chest pain [Unknown]
  - Migraine [Unknown]
  - Food allergy [Unknown]
  - Lip swelling [Unknown]
  - Swollen tongue [Unknown]
  - Testicular pain [Unknown]
  - Gait disturbance [Unknown]
  - Fall [Unknown]
